FAERS Safety Report 17037246 (Version 2)
Quarter: 2020Q1

REPORT INFORMATION
  Report Type: Spontaneous
  Country: US (occurrence: US)
  Receive Date: 20191115
  Receipt Date: 20200123
  Transmission Date: 20200409
  Serious: No
  Sender: FDA-Public Use
  Company Number: US-PFIZER INC-2019491027

PATIENT
  Age: 74 Year
  Sex: Female
  Weight: 91.61 kg

DRUGS (5)
  1. LISINOPRIL. [Concomitant]
     Active Substance: LISINOPRIL
     Dosage: 10 MG, UNK
  2. METFORMIN [Concomitant]
     Active Substance: METFORMIN HYDROCHLORIDE
     Dosage: 500 MG, UNK
  3. TIKOSYN [Suspect]
     Active Substance: DOFETILIDE
     Indication: ATRIAL FIBRILLATION
     Dosage: 10 TWICE A DAY
     Dates: start: 20180430
  4. WARFARIN SODIUM [WARFARIN SODIUM CLATHRATE] [Concomitant]
     Dosage: 2.5 MG, UNK
  5. METOPROLOL [METOPROLOL SUCCINATE] [Concomitant]
     Dosage: 100 MG, UNK

REACTIONS (2)
  - Daydreaming [Unknown]
  - Emotional disorder [Unknown]

NARRATIVE: CASE EVENT DATE: 201804
